FAERS Safety Report 7879838-4 (Version None)
Quarter: 2011Q4

REPORT INFORMATION
  Report Type: 
  Country: None (occurrence: None)
  Receive Date: 20111101
  Receipt Date: 20111024
  Transmission Date: 20120403
  Serious: Yes (Hospitalization)
  Sender: FDA-Public Use
  Company Number: FR-ASTRAZENECA-2011SE64280

PATIENT
  Sex: Female

DRUGS (2)
  1. CELOCURINE [Suspect]
     Route: 042
     Dates: start: 20070822, end: 20070822
  2. DIPRIVAN [Suspect]
     Route: 042
     Dates: start: 20070822, end: 20070822

REACTIONS (2)
  - NEUROMUSCULAR BLOCK PROLONGED [None]
  - DELAYED RECOVERY FROM ANAESTHESIA [None]
